FAERS Safety Report 7413759-6 (Version None)
Quarter: 2011Q2

REPORT INFORMATION
  Report Type: 
  Country: None (occurrence: None)
  Receive Date: 20110413
  Receipt Date: 20110406
  Transmission Date: 20111010
  Serious: Yes (Death, Life-Threatening)
  Sender: FDA-Public Use
  Company Number: JP-GENENTECH-312820

PATIENT
  Sex: Male

DRUGS (8)
  1. LANSOPRAZOLE [Concomitant]
     Indication: PRODUCT USED FOR UNKNOWN INDICATION
     Dosage: 30 MG, QD
     Route: 048
     Dates: start: 20100918
  2. ENDOXAN [Concomitant]
     Indication: CHEMOTHERAPY
     Dosage: 750 MG, UNK
     Dates: start: 20100828, end: 20101210
  3. PREDNISOLONE [Concomitant]
     Indication: CHEMOTHERAPY
     Dosage: 60 MG, UNK
     Dates: start: 20100828, end: 20101210
  4. THERARUBICIN [Concomitant]
     Indication: CHEMOTHERAPY
     Dosage: 45 MG, UNK
     Dates: start: 20100828, end: 20101210
  5. FLUCONAZOLE [Concomitant]
     Indication: PRODUCT USED FOR UNKNOWN INDICATION
     Dosage: 200 MG, QD
     Route: 048
     Dates: start: 20100930
  6. MAXIPIME [Concomitant]
     Indication: INFECTION
     Dosage: 4 G, QD
     Route: 042
     Dates: start: 20101008, end: 20101021
  7. RITUXIMAB [Suspect]
     Indication: LYMPHOMA
     Dosage: 375 MG/M2, UNK
     Route: 042
     Dates: start: 20100915, end: 20101209
  8. LEVOFLOXACIN [Concomitant]
     Indication: INFECTION
     Dosage: 500 MG, UNK
     Route: 048
     Dates: start: 20100903, end: 20101024

REACTIONS (1)
  - PROGRESSIVE MULTIFOCAL LEUKOENCEPHALOPATHY [None]
